FAERS Safety Report 4584502-3 (Version None)
Quarter: 2005Q1

REPORT INFORMATION
  Report Type: 
  Country: None (occurrence: None)
  Receive Date: 20050125
  Receipt Date: 20041105
  Transmission Date: 20050727
  Serious: No
  Sender: FDA-Public Use
  Company Number: USA041183404

PATIENT
  Age: 55 Year
  Sex: Male

DRUGS (13)
  1. FORTEO [Suspect]
     Indication: OSTEOPOROSIS
     Dates: start: 20041028
  2. VIOXX [Concomitant]
  3. CELEBREX [Concomitant]
  4. DILAUDID [Concomitant]
  5. AMBIEN [Concomitant]
  6. DIAZEPAM [Concomitant]
  7. DILANTIN [Concomitant]
  8. DEPAKOTE [Concomitant]
  9. ASPIRIN [Concomitant]
  10. NITROGLYCERIN [Concomitant]
  11. VITAMIN D [Concomitant]
  12. CALTRATE (CALCIUM CARBONATE) [Concomitant]
  13. CENTRUM [Concomitant]

REACTIONS (6)
  - ARTHRALGIA [None]
  - DIARRHOEA [None]
  - DYSPNOEA [None]
  - JOINT STIFFNESS [None]
  - NERVOUSNESS [None]
  - PANIC ATTACK [None]
